FAERS Safety Report 5537377-X (Version None)
Quarter: 2007Q4

REPORT INFORMATION
  Report Type: 
  Country: None (occurrence: None)
  Receive Date: 20071207
  Receipt Date: 20071130
  Transmission Date: 20080405
  Serious: Yes (Other)
  Sender: FDA-Public Use
  Company Number: A0696797A

PATIENT
  Age: 59 Year
  Sex: Female

DRUGS (12)
  1. REQUIP [Suspect]
     Indication: RESTLESS LEGS SYNDROME
     Dosage: 1MG PER DAY
     Route: 048
  2. BACTRIM [Concomitant]
  3. LANTUS [Concomitant]
  4. HUMALOG [Concomitant]
  5. TOPROL-XL [Concomitant]
  6. TRICOR [Concomitant]
  7. PLAVIX [Concomitant]
  8. UNSPECIFIED MEDICATION [Concomitant]
  9. OXYBUTYNIN CHLORIDE [Concomitant]
  10. AVAPRO [Concomitant]
  11. LIBRAX [Concomitant]
  12. ENABLEX [Concomitant]

REACTIONS (15)
  - ALOPECIA [None]
  - DRUG INEFFECTIVE [None]
  - GASTRIC DISORDER [None]
  - GASTROINTESTINAL PAIN [None]
  - MEMORY IMPAIRMENT [None]
  - MOUTH HAEMORRHAGE [None]
  - NASAL CONGESTION [None]
  - ORAL PAIN [None]
  - SOMNAMBULISM [None]
  - STAPHYLOCOCCAL INFECTION [None]
  - SWOLLEN TONGUE [None]
  - THROAT IRRITATION [None]
  - URINARY INCONTINENCE [None]
  - URINARY TRACT INFECTION [None]
  - VISION BLURRED [None]
